FAERS Safety Report 4616892-7 (Version None)
Quarter: 2005Q1

REPORT INFORMATION
  Report Type: 
  Country: None (occurrence: None)
  Receive Date: 20050321
  Receipt Date: 20050307
  Transmission Date: 20050727
  Serious: Yes (Other)
  Sender: FDA-Public Use
  Company Number: 2005042184

PATIENT
  Sex: Female

DRUGS (1)
  1. ZITHROMAX [Suspect]
     Indication: SINUSITIS
     Dosage: ORAL
     Route: 048

REACTIONS (3)
  - FLUID RETENTION [None]
  - GLOMERULONEPHRITIS [None]
  - HYPONATRAEMIA [None]
